FAERS Safety Report 4497345-6 (Version None)
Quarter: 2004Q4

REPORT INFORMATION
  Report Type: 
  Country: None (occurrence: None)
  Receive Date: 20041110
  Receipt Date: 20040917
  Transmission Date: 20050328
  Serious: Yes (Hospitalization, Other)
  Sender: FDA-Public Use
  Company Number: PHNU2004DE03253

PATIENT
  Sex: Male
  Weight: 87 kg

DRUGS (9)
  1. CO-DIOVAN [Suspect]
     Dosage: 160/12.5 MG/D
     Route: 048
     Dates: start: 20010101, end: 20040101
  2. CO-DIOVAN [Suspect]
     Dosage: 80/12.5 MG/D
     Route: 048
     Dates: start: 20040101, end: 20040101
  3. DIOVAN [Suspect]
     Dosage: 1 DF, QD
     Dates: start: 19980101
  4. DIOVAN [Suspect]
     Dosage: 80 MG BID
     Route: 048
     Dates: start: 20041006
  5. NATRILIX [Suspect]
     Dosage: 1 DF, QD
     Route: 048
     Dates: start: 20000101
  6. GLUCOBAY [Concomitant]
     Dosage: 50 MG, TID
     Dates: start: 19970101
  7. ASPIRIN [Concomitant]
     Dosage: 100 MG, QD
     Dates: start: 19970101
  8. EZETROL [Concomitant]
     Dosage: 10 MG, QD
     Dates: start: 20030101
  9. BEXTRA [Concomitant]
     Dosage: UNK, PRN
     Dates: start: 20041001

REACTIONS (10)
  - ANKYLOSING SPONDYLITIS [None]
  - BACK PAIN [None]
  - BLOOD URIC ACID INCREASED [None]
  - DRUG INTERACTION [None]
  - HYPERTENSION [None]
  - INTERVERTEBRAL DISC DEGENERATION [None]
  - INTERVERTEBRAL DISC PROTRUSION [None]
  - LOCALISED OSTEOARTHRITIS [None]
  - SENSORY DISTURBANCE [None]
  - SPONDYLOSIS [None]
